FAERS Safety Report 11046909 (Version 3)
Quarter: 2019Q3

REPORT INFORMATION
  Report Type: Report from Study
  Country: US (occurrence: US)
  Receive Date: 20150420
  Receipt Date: 20190712
  Transmission Date: 20191004
  Serious: Yes (Hospitalization)
  Sender: FDA-Public Use
  Company Number: US-SA-2015SA048427

PATIENT
  Age: 32 Year
  Sex: Male

DRUGS (7)
  1. SEROQUEL [Concomitant]
     Active Substance: QUETIAPINE FUMARATE
     Dosage: UNK UNK,UNK
     Route: 065
     Dates: start: 2013
  2. LITHIUM. [Concomitant]
     Active Substance: LITHIUM
     Dosage: UNK UNK,UNK
     Route: 065
     Dates: start: 2013
  3. ELIGLUSTAT. [Suspect]
     Active Substance: ELIGLUSTAT
     Indication: GAUCHER^S DISEASE
     Dosage: 84 MG,BID
     Route: 048
     Dates: start: 20150318
  4. ELIGLUSTAT. [Interacting]
     Active Substance: ELIGLUSTAT
     Dosage: 84 MG,BID
     Route: 048
     Dates: start: 20160414
  5. ELIGLUSTAT. [Interacting]
     Active Substance: ELIGLUSTAT
     Dosage: 84 MG,BID
     Route: 048
     Dates: start: 20180316
  6. ZIPRASIDONE HYDROCHLORIDE. [Interacting]
     Active Substance: ZIPRASIDONE HYDROCHLORIDE
     Dosage: UNK UNK,UNK
     Route: 065
     Dates: start: 201504
  7. COGENTIN [Interacting]
     Active Substance: BENZTROPINE MESYLATE
     Dosage: UNK UNK,UNK
     Route: 065

REACTIONS (5)
  - Mental disorder [Unknown]
  - Drug interaction [Recovered/Resolved]
  - Product dose omission [Unknown]
  - Cardiac disorder [Unknown]
  - Psychotic disorder [Recovered/Resolved]

NARRATIVE: CASE EVENT DATE: 20150408
